FAERS Safety Report 8435941-1 (Version None)
Quarter: 2012Q2

REPORT INFORMATION
  Report Type: 
  Country: None (occurrence: None)
  Receive Date: 20120608
  Receipt Date: 20120608
  Transmission Date: 20120825
  Serious: Yes (Disabling)
  Sender: FDA-Public Use
  Company Number: None

PATIENT
  Sex: Female
  Weight: 83.9154 kg

DRUGS (1)
  1. CYMBALTA [Suspect]
     Indication: ARTHRITIS
     Dosage: 30 MG, 2X DAILY, PO
     Route: 048
     Dates: start: 20111202, end: 20120515

REACTIONS (9)
  - INSOMNIA [None]
  - PARAESTHESIA [None]
  - BLOOD PRESSURE INCREASED [None]
  - DRUG WITHDRAWAL SYNDROME [None]
  - DISORIENTATION [None]
  - TINNITUS [None]
  - MIGRAINE [None]
  - INFLUENZA LIKE ILLNESS [None]
  - COLD SWEAT [None]
